FAERS Safety Report 5175324-3 (Version None)
Quarter: 2006Q4

REPORT INFORMATION
  Report Type: 
  Country: None (occurrence: None)
  Receive Date: 20061211
  Receipt Date: 20061211
  Transmission Date: 20070319
  Serious: Yes (Other)
  Sender: FDA-Public Use
  Company Number: None

PATIENT
  Age: 36 Year
  Sex: Female
  Weight: 77.1115 kg

DRUGS (1)
  1. ACETAMINOPHEN [Suspect]
     Indication: HEADACHE
     Dosage: 2 GELCAPS COUPLE TIMES A WEEK PO
     Route: 048
     Dates: start: 20060909, end: 20061009

REACTIONS (7)
  - CHILLS [None]
  - DIZZINESS [None]
  - FEELING HOT [None]
  - PHARMACEUTICAL PRODUCT COMPLAINT [None]
  - PRESYNCOPE [None]
  - SYNCOPE [None]
  - VOMITING [None]
